FAERS Safety Report 19980854 (Version 2)
Quarter: 2022Q1

REPORT INFORMATION
  Report Type: Spontaneous
  Country: US (occurrence: US)
  Receive Date: 20211021
  Receipt Date: 20220101
  Transmission Date: 20220423
  Serious: Yes (Other)
  Sender: FDA-Public Use
  Company Number: US-AMNEAL PHARMACEUTICALS-2021-AMRX-04205

PATIENT
  Age: 68 Year
  Sex: Female

DRUGS (9)
  1. RYTARY [Interacting]
     Active Substance: CARBIDOPA\LEVODOPA
     Indication: Parkinson^s disease
     Dosage: 4 CAPSULES, 4X/DAY
     Route: 048
     Dates: start: 20210701
  2. RYTARY [Interacting]
     Active Substance: CARBIDOPA\LEVODOPA
     Dosage: 4 CAPSULES, 3X/DAY
     Route: 048
  3. RYTARY [Interacting]
     Active Substance: CARBIDOPA\LEVODOPA
     Dosage: UNK
     Route: 048
     Dates: start: 20210320
  4. RYTARY [Interacting]
     Active Substance: CARBIDOPA\LEVODOPA
     Dosage: 3-4 CAPSULES 4-5 TIMES PER DAY
     Route: 048
  5. SELEGILINE [Interacting]
     Active Substance: SELEGILINE
     Indication: Parkinson^s disease
     Dosage: UNK
     Route: 065
     Dates: end: 2021
  6. CLONAZEPAM [Concomitant]
     Active Substance: CLONAZEPAM
     Indication: Product used for unknown indication
     Dosage: 1 TABLETS, BEDTIME
     Route: 065
  7. ATORVASTATIN [Concomitant]
     Active Substance: ATORVASTATIN
     Indication: Product used for unknown indication
     Dosage: 1 TABLETS, DAILY
     Route: 065
  8. MELOXICAM [Concomitant]
     Active Substance: MELOXICAM
     Indication: Product used for unknown indication
     Dosage: 1 TABLETS, DAILY
     Route: 065
  9. CITALOPRAM [Concomitant]
     Active Substance: CITALOPRAM HYDROBROMIDE
     Indication: Product used for unknown indication
     Dosage: 1 TABLETS, DAILY
     Route: 065

REACTIONS (7)
  - Loss of consciousness [Recovered/Resolved]
  - Coordination abnormal [Recovered/Resolved]
  - Dyskinesia [Recovered/Resolved]
  - Orthostatic hypotension [Unknown]
  - Dizziness [Recovered/Resolved]
  - Labelled drug-drug interaction medication error [Unknown]
  - Prescribed overdose [Unknown]

NARRATIVE: CASE EVENT DATE: 20210701
